FAERS Safety Report 10341331 (Version 3)
Quarter: 2014Q4

REPORT INFORMATION
  Report Type: Spontaneous
  Country: GB (occurrence: GB)
  Receive Date: 20140725
  Receipt Date: 20141104
  Transmission Date: 20150528
  Serious: Yes (Death, Life-Threatening, Hospitalization)
  Sender: FDA-Public Use
  Company Number: GB-ROCHE-1440220

PATIENT
  Age: 50 Year
  Sex: Female
  Weight: 59 kg

DRUGS (13)
  1. SALBUTAMOL [Concomitant]
     Active Substance: ALBUTEROL
  2. TIOTROPIUM [Concomitant]
     Active Substance: TIOTROPIUM
  3. LANSOPRAZOLE. [Concomitant]
     Active Substance: LANSOPRAZOLE
  4. METOCLOPRAMIDE. [Concomitant]
     Active Substance: METOCLOPRAMIDE
  5. DEXAMETHASONE. [Concomitant]
     Active Substance: DEXAMETHASONE
  6. MORPHINE SULFATE. [Concomitant]
     Active Substance: MORPHINE SULFATE
  7. TIOTROPIUM [Concomitant]
     Active Substance: TIOTROPIUM
  8. TERBUTALINE [Concomitant]
     Active Substance: TERBUTALINE
  9. TRAMADOL [Concomitant]
     Active Substance: TRAMADOL
  10. XOLAIR [Suspect]
     Active Substance: OMALIZUMAB
     Indication: ASTHMA
     Route: 058
  11. MONTELUKAST [Concomitant]
     Active Substance: MONTELUKAST SODIUM
  12. PARACETAMOL [Concomitant]
     Active Substance: ACETAMINOPHEN
  13. SYMBICORT [Concomitant]
     Active Substance: BUDESONIDE\FORMOTEROL FUMARATE DIHYDRATE
     Dosage: 200/6 UG
     Route: 065

REACTIONS (6)
  - Brain neoplasm [Fatal]
  - Headache [Unknown]
  - Neoplasm malignant [Not Recovered/Not Resolved]
  - Vision blurred [Unknown]
  - Adenocarcinoma [Fatal]
  - Vomiting [Unknown]

NARRATIVE: CASE EVENT DATE: 20131128
